FAERS Safety Report 22805432 (Version 4)
Quarter: 2023Q4

REPORT INFORMATION
  Report Type: Report from Study
  Country: CA (occurrence: CA)
  Receive Date: 20230809
  Receipt Date: 20231027
  Transmission Date: 20240110
  Serious: Yes (Other)
  Sender: FDA-Public Use
  Company Number: CA-JNJFOC-20230810573

PATIENT
  Age: 49 Year
  Sex: Female
  Weight: 60 kg

DRUGS (3)
  1. REMICADE [Suspect]
     Active Substance: INFLIXIMAB
     Indication: Crohn^s disease
     Dosage: LATEST DOSE GIVEN ON 03-AUG-2023 AND 06-SEP-2023.?EXPIRATION DATE: 28-FEB-2026 AND 28-NOV-2025.
     Route: 042
     Dates: start: 20201005, end: 20230906
  2. MERCAPTOPURINE [Concomitant]
     Active Substance: MERCAPTOPURINE
     Indication: Product used for unknown indication
     Route: 065
  3. SOLU-CORTEF [Concomitant]
     Active Substance: HYDROCORTISONE SODIUM SUCCINATE
     Indication: Premedication
     Dosage: 15-30 MIN PRIOR TO INFUSION
     Route: 042

REACTIONS (7)
  - Throat irritation [Unknown]
  - Throat tightness [Unknown]
  - Pain [Recovered/Resolved]
  - Infusion related reaction [Recovering/Resolving]
  - Heart rate increased [Recovered/Resolved]
  - Dizziness [Recovering/Resolving]
  - Infection [Unknown]

NARRATIVE: CASE EVENT DATE: 20230803
